FAERS Safety Report 4449506-X (Version None)
Quarter: 2004Q3

REPORT INFORMATION
  Report Type: 
  Country: None (occurrence: None)
  Receive Date: 20040914
  Receipt Date: 20040902
  Transmission Date: 20050211
  Serious: Yes (Hospitalization)
  Sender: FDA-Public Use
  Company Number: FR-JNJFOC-20040304780

PATIENT
  Sex: Female

DRUGS (6)
  1. TOPALGIC [Suspect]
     Route: 049
  2. TOPALGIC [Suspect]
     Route: 049
  3. TAXOTERE [Suspect]
     Route: 042
  4. ADRIBLASTINE [Suspect]
     Route: 042
  5. ZOMETA [Concomitant]
     Route: 042
  6. DEROXAT [Concomitant]
     Route: 042

REACTIONS (7)
  - ANAEMIA [None]
  - DEHYDRATION [None]
  - DRUG INTERACTION [None]
  - LEUKOPENIA [None]
  - NAUSEA [None]
  - NEUTROPENIA [None]
  - VOMITING [None]
